FAERS Safety Report 23128402 (Version 1)
Quarter: 2023Q4

REPORT INFORMATION
  Report Type: Report from Study
  Country: CA (occurrence: CA)
  Receive Date: 20231031
  Receipt Date: 20231031
  Transmission Date: 20240109
  Serious: Yes (Other)
  Sender: FDA-Public Use
  Company Number: CA-SAMSUNG BIOEPIS-SB-2023-29012

PATIENT
  Sex: Male
  Weight: 82 kg

DRUGS (1)
  1. RENFLEXIS [Suspect]
     Active Substance: INFLIXIMAB-ABDA
     Indication: Arthritis reactive
     Route: 042
     Dates: start: 20230223

REACTIONS (2)
  - Cellulitis [Recovering/Resolving]
  - Product use in unapproved indication [Unknown]
